FAERS Safety Report 20140711 (Version 1)
Quarter: 2021Q4

REPORT INFORMATION
  Report Type: Spontaneous
  Country: BR (occurrence: BR)
  Receive Date: 20211202
  Receipt Date: 20211202
  Transmission Date: 20220303
  Serious: Yes (Other)
  Sender: FDA-Public Use
  Company Number: BR-NOVARTISPH-NVSC2020BR007098

PATIENT
  Sex: Male
  Weight: 50 kg

DRUGS (3)
  1. TIMOLOL\TRAVOPROST [Suspect]
     Active Substance: TIMOLOL\TRAVOPROST
     Indication: Glaucoma
     Dosage: 1 GTT, QD (8 YEARS AGO)
     Route: 047
  2. LOSARTAN [Concomitant]
     Active Substance: LOSARTAN
     Indication: Hypertension
     Dosage: 1 DF, QD (11 YEARS AGO)
     Route: 048
  3. BENSERAZIDE\LEVODOPA [Concomitant]
     Active Substance: BENSERAZIDE\LEVODOPA
     Indication: Tremor
     Dosage: 1 DF, Q4H (10 YEARS)
     Route: 048

REACTIONS (4)
  - Glaucoma [Not Recovered/Not Resolved]
  - Cerebrovascular accident [Unknown]
  - Insomnia [Recovering/Resolving]
  - Depression [Recovering/Resolving]
